FAERS Safety Report 4879046-5 (Version None)
Quarter: 2006Q1

REPORT INFORMATION
  Report Type: 
  Country: None (occurrence: None)
  Receive Date: 20060112
  Receipt Date: 20060103
  Transmission Date: 20060701
  Serious: Yes (Other)
  Sender: FDA-Public Use
  Company Number: ZA-BRISTOL-MYERS SQUIBB COMPANY-13234661

PATIENT
  Age: 43 Year
  Sex: Male

DRUGS (6)
  1. CISPLATIN [Suspect]
     Indication: GASTRIC CANCER
     Route: 041
     Dates: start: 20051202, end: 20051202
  2. FLUOROURACIL [Suspect]
     Indication: GASTRIC CANCER
     Route: 041
     Dates: start: 20051202, end: 20051207
  3. COLCHICINE [Concomitant]
     Indication: GOUT
     Route: 048
     Dates: start: 20051206, end: 20051207
  4. LARGACTIL [Concomitant]
     Indication: HICCUPS
     Route: 048
     Dates: start: 20051214, end: 20051215
  5. ATENOLOL [Concomitant]
     Indication: HYPERTENSION
     Route: 048
     Dates: start: 19991001
  6. ZOFRAN [Concomitant]
     Indication: NAUSEA
     Route: 048
     Dates: start: 20051208

REACTIONS (1)
  - DEHYDRATION [None]
